FAERS Safety Report 20331900 (Version 1)
Quarter: 2022Q1

REPORT INFORMATION
  Report Type: Spontaneous
  Country: CA (occurrence: CA)
  Receive Date: 20220113
  Receipt Date: 20220113
  Transmission Date: 20220423
  Serious: Yes (Death)
  Sender: FDA-Public Use
  Company Number: CA-PFIZER INC-202200015056

PATIENT
  Age: 27 Year
  Sex: Female
  Weight: 58.957 kg

DRUGS (4)
  1. PREGABALIN [Suspect]
     Active Substance: PREGABALIN
     Indication: Anxiety
     Dosage: 50 MG, 2X/DAY
     Route: 048
  2. PREGABALIN [Suspect]
     Active Substance: PREGABALIN
     Dosage: 75 MG
     Route: 048
  3. NALTREXONE [Concomitant]
     Active Substance: NALTREXONE
  4. PANTOPRAZOLE T [Concomitant]

REACTIONS (2)
  - Completed suicide [Fatal]
  - Off label use [Unknown]
